FAERS Safety Report 4289815-0 (Version None)
Quarter: 2004Q1

REPORT INFORMATION
  Report Type: 
  Country: None (occurrence: None)
  Receive Date: 20040210
  Receipt Date: 20040204
  Transmission Date: 20041129
  Serious: Yes (Hospitalization, Other)
  Sender: FDA-Public Use
  Company Number: US-BRISTOL-MYERS SQUIBB COMPANY-12496196

PATIENT
  Age: 91 Year
  Sex: Female

DRUGS (2)
  1. GATIFLOXACIN [Suspect]
     Route: 048
  2. PREDNISONE [Suspect]
     Route: 048

REACTIONS (2)
  - DRUG INTERACTION [None]
  - HYPERGLYCAEMIA [None]
